FAERS Safety Report 20491350 (Version 1)
Quarter: 2022Q1

REPORT INFORMATION
  Report Type: Spontaneous
  Country: FR (occurrence: FR)
  Receive Date: 20220218
  Receipt Date: 20220218
  Transmission Date: 20220423
  Serious: Yes (Congenital Anomaly, Other)
  Sender: FDA-Public Use
  Company Number: FR-ABBVIE-22K-056-4279242-00

PATIENT
  Sex: Female

DRUGS (1)
  1. VALPROATE SODIUM [Suspect]
     Active Substance: VALPROATE SODIUM
     Indication: Maternal exposure timing unspecified
     Route: 064

REACTIONS (30)
  - Spina bifida [Unknown]
  - Congenital claw toe [Unknown]
  - Congenital aqueductal stenosis [Unknown]
  - Neurogenic bladder [Unknown]
  - Scoliosis [Unknown]
  - Vesicoureteric reflux [Unknown]
  - Lumbarisation [Unknown]
  - Decubitus ulcer [Unknown]
  - Urinary tract infection [Unknown]
  - Meningomyelocele [Unknown]
  - Dilatation ventricular [Unknown]
  - Urinary incontinence [Unknown]
  - Anal incontinence [Unknown]
  - Limb malformation [Unknown]
  - Rectal prolapse [Unknown]
  - Skin ulcer [Unknown]
  - Peroneal nerve palsy [Unknown]
  - Hyperkeratosis [Unknown]
  - Vesicoureteric reflux [Unknown]
  - Back pain [Unknown]
  - Muscle contracture [Unknown]
  - Hypotonia [Unknown]
  - Sensory disturbance [Unknown]
  - Nail disorder [Unknown]
  - Gait disturbance [Unknown]
  - Adenoidal hypertrophy [Unknown]
  - Pharyngeal disorder [Unknown]
  - Otitis media [Unknown]
  - Pain in extremity [Unknown]
  - Foetal exposure during pregnancy [Unknown]
